FAERS Safety Report 4853926-9 (Version None)
Quarter: 2005Q4

REPORT INFORMATION
  Report Type: 
  Country: None (occurrence: None)
  Receive Date: 20051213
  Receipt Date: 20051202
  Transmission Date: 20060501
  Serious: No
  Sender: FDA-Public Use
  Company Number: HQWYE829406DEC05

PATIENT
  Age: 43 Year
  Sex: Male
  Weight: 128.03 kg

DRUGS (6)
  1. TYGACIL [Suspect]
     Indication: CELLULITIS
     Dosage: 100 MG DOSE FOLLOWED BY A 50 MG DOSE, INTRAVENOUS
     Route: 042
     Dates: start: 20051201
  2. UNASYN [Concomitant]
  3. ROCEPHIN [Concomitant]
  4. LEVAQUIN [Concomitant]
  5. VANCOMYCIN [Concomitant]
  6. INSULIN [Concomitant]

REACTIONS (1)
  - BLINDNESS UNILATERAL [None]
